FAERS Safety Report 7648367-5 (Version None)
Quarter: 2011Q3

REPORT INFORMATION
  Report Type: 
  Country: None (occurrence: None)
  Receive Date: 20110801
  Receipt Date: 20110718
  Transmission Date: 20111222
  Serious: Yes (Hospitalization, Other)
  Sender: FDA-Public Use
  Company Number: US-BAYER-2011-062971

PATIENT
  Age: 76 Year
  Sex: Male
  Weight: 91 kg

DRUGS (6)
  1. CELEBREX [Suspect]
     Indication: ARTHRALGIA
     Dosage: DAILY DOSE 200 MG
     Route: 048
     Dates: start: 20110613, end: 20110614
  2. ACETYLSALICYLIC ACID SRT [Suspect]
     Indication: PRODUCT USED FOR UNKNOWN INDICATION
     Dosage: UNKNOWN DOSE AND FREQUENCY
  3. FINASTERIDE [Concomitant]
     Indication: PROSTATIC DISORDER
     Dosage: DAILY DOSE 5 MG
  4. CELEBREX [Suspect]
     Indication: SCIATICA
     Dosage: 200 MG, BID
     Route: 048
     Dates: start: 20110624, end: 20110601
  5. MAGNESIUM [Concomitant]
  6. DOXAZOSIN MESYLATE [Concomitant]
     Indication: PRODUCT USED FOR UNKNOWN INDICATION
     Dosage: DAILY DOSE 4 MG

REACTIONS (4)
  - GASTRITIS EROSIVE [None]
  - HAEMORRHOIDS [None]
  - GASTROINTESTINAL HAEMORRHAGE [None]
  - HAEMATOCHEZIA [None]
